FAERS Safety Report 25660173 (Version 1)
Quarter: 2025Q3

REPORT INFORMATION
  Report Type: Spontaneous
  Country: EU (occurrence: EU)
  Receive Date: 20250808
  Receipt Date: 20250808
  Transmission Date: 20251020
  Serious: Yes (Life-Threatening)
  Sender: FRESENIUS KABI
  Company Number: None

PATIENT
  Age: 27 Year
  Sex: Female
  Weight: 89 kg

DRUGS (7)
  1. LIDOCAINE HYDROCHLORIDE [Suspect]
     Active Substance: LIDOCAINE HYDROCHLORIDE
     Indication: Labour pain
     Route: 008
     Dates: start: 20250615, end: 20250615
  2. EPINEPHRINE\LIDOCAINE [Suspect]
     Active Substance: EPINEPHRINE\LIDOCAINE
     Indication: Labour pain
     Route: 008
     Dates: start: 20250615, end: 20250615
  3. LEVOBUPIVACAINE HYDROCHLORIDE [Suspect]
     Active Substance: LEVOBUPIVACAINE HYDROCHLORIDE
     Indication: Labour pain
     Route: 008
     Dates: start: 20250615, end: 20250615
  4. CARBETOCIN [Suspect]
     Active Substance: CARBETOCIN
     Indication: Labour pain
     Route: 042
     Dates: start: 20250615, end: 20250615
  5. SUFENTANIL CITRATE [Suspect]
     Active Substance: SUFENTANIL CITRATE
     Indication: Labour pain
     Route: 008
     Dates: start: 20250615, end: 20250615
  6. CEFAZOLIN SODIUM [Suspect]
     Active Substance: CEFAZOLIN SODIUM
     Indication: Antibiotic prophylaxis
     Route: 042
     Dates: start: 20250615, end: 20250615
  7. NOREPINEPHRINE BITARTRATE [Concomitant]
     Active Substance: NOREPINEPHRINE BITARTRATE
     Indication: Product used for unknown indication

REACTIONS (3)
  - Speech disorder [Recovered/Resolved]
  - Acute respiratory distress syndrome [Recovered/Resolved]
  - Mydriasis [Recovered/Resolved]

NARRATIVE: CASE EVENT DATE: 20250615
